FAERS Safety Report 15757738 (Version 5)
Quarter: 2019Q1

REPORT INFORMATION
  Report Type: Report from Study
  Country: CN (occurrence: CN)
  Receive Date: 20181225
  Receipt Date: 20190123
  Transmission Date: 20190417
  Serious: Yes (Hospitalization)
  Sender: FDA-Public Use
  Company Number: CN-ROCHE-2204852

PATIENT
  Age: 76 Year
  Sex: Male
  Weight: 69 kg

DRUGS (32)
  1. MORPHINE [Concomitant]
     Active Substance: MORPHINE
     Route: 048
     Dates: start: 20181022, end: 20181022
  2. MEDIUM AND LONG CHAIN FAT EMULSION INJECTION [Concomitant]
     Active Substance: LIPOSYN (R) INTRAVENOUS FAT EMULSION
     Route: 042
     Dates: start: 20180922, end: 20181024
  3. BRUCEA JAVANICA OIL [Concomitant]
     Dosage: 2 AMPULE
     Route: 042
     Dates: start: 20181024, end: 20181025
  4. DEXAMETHASONE SODIUM PHOSPHATE. [Concomitant]
     Active Substance: DEXAMETHASONE SODIUM PHOSPHATE
     Route: 042
     Dates: start: 20181123, end: 20181126
  5. BERBERINE [Concomitant]
     Active Substance: BERBERINE
     Route: 048
     Dates: start: 20181123, end: 20181126
  6. CEFOPERAZONE SODIUM/SULBACTAM SODIUM [Concomitant]
     Active Substance: CEFOPERAZONE SODIUM\SULBACTAM SODIUM
     Route: 042
     Dates: start: 20181128, end: 20181202
  7. AMLODIPINE BESYLATE. [Concomitant]
     Active Substance: AMLODIPINE BESYLATE
     Route: 048
     Dates: start: 20181030, end: 20181103
  8. MORPHINE [Concomitant]
     Active Substance: MORPHINE
     Route: 048
     Dates: start: 20181029
  9. BRUCEA JAVANICA OIL [Concomitant]
     Route: 042
     Dates: start: 20181029, end: 20181029
  10. YI SHANFU [Concomitant]
     Route: 048
     Dates: start: 20181102, end: 20181123
  11. INVERT SUGAR [Concomitant]
     Active Substance: INVERT SUGAR
     Route: 042
     Dates: start: 20181122, end: 20181123
  12. DISODIUM CLODRONATE [Concomitant]
     Route: 048
     Dates: start: 20180417
  13. RIBONUCLEIC ACID [Concomitant]
     Active Substance: RIBONUCLEIC ACID
     Dosage: 4 AMPULE
     Route: 042
     Dates: start: 20181022, end: 20181101
  14. ATEZOLIZUMAB. [Suspect]
     Active Substance: ATEZOLIZUMAB
     Indication: HORMONE-REFRACTORY PROSTATE CANCER
     Dosage: DATE OF MOST RECENT DOSE OF ATEZOLIZUMAB PRIOR TO SAE ONSET : 29/SEP/2018?DATE OF MOST RECENT DOSE O
     Route: 042
     Dates: start: 20180419
  15. KANGXIN [Concomitant]
     Active Substance: GRANISETRON
     Route: 048
     Dates: start: 2015
  16. MORPHINE [Concomitant]
     Active Substance: MORPHINE
     Route: 048
     Dates: start: 20181027
  17. ROCEPHIN [Concomitant]
     Active Substance: CEFTRIAXONE SODIUM
     Route: 042
     Dates: start: 20181123, end: 20181128
  18. MONTMORILLONITE [Concomitant]
     Active Substance: MONTMORILLONITE
     Dosage: POWDER
     Route: 065
  19. BRUCEA JAVANICA OIL [Concomitant]
     Route: 042
     Dates: start: 20181106, end: 20181114
  20. NADROPARIN CALCIUM [Concomitant]
     Active Substance: NADROPARIN CALCIUM
     Route: 058
     Dates: start: 20181024, end: 20181102
  21. RABEPRAZOLE [Concomitant]
     Active Substance: RABEPRAZOLE
     Route: 042
     Dates: start: 20181026, end: 20181026
  22. INVERT SUGAR [Concomitant]
     Active Substance: INVERT SUGAR
     Route: 042
     Dates: start: 20181103, end: 20181106
  23. ENZALUTAMIDE [Suspect]
     Active Substance: ENZALUTAMIDE
     Indication: HORMONE-REFRACTORY PROSTATE CANCER
     Dosage: DATE OF MOST RECENT DOSE OF SUSPECTED ENZALUTAMIDE PRIOR TO AE ONSET : 21/OCT/2018 AT 17:19?DATE OF
     Route: 048
     Dates: start: 20180419
  24. AMLODIPINE BESYLATE. [Concomitant]
     Active Substance: AMLODIPINE BESYLATE
     Route: 048
     Dates: start: 201707
  25. TIANQINGGANPING [Concomitant]
     Route: 048
     Dates: start: 20181102, end: 20181123
  26. ALPROSTADIL. [Concomitant]
     Active Substance: ALPROSTADIL
     Route: 042
     Dates: start: 20181024, end: 20181112
  27. TAMSULOSIN [Concomitant]
     Active Substance: TAMSULOSIN
     Route: 048
     Dates: start: 20181029, end: 20181029
  28. HUMAN SERUM ALBUMIN [Concomitant]
     Active Substance: ALBUMIN HUMAN
     Route: 042
     Dates: start: 20181120, end: 20181123
  29. FRUCTOSE [Concomitant]
     Active Substance: FRUCTOSE
     Route: 065
     Dates: start: 20181127, end: 20181204
  30. POTASSIUM CHLORIDE. [Concomitant]
     Active Substance: POTASSIUM CHLORIDE
     Dosage: SUSTAINED RELEASE
     Route: 048
     Dates: start: 20181129, end: 20181207
  31. RIBONUCLEIC ACID [Concomitant]
     Active Substance: RIBONUCLEIC ACID
     Route: 042
     Dates: start: 20181022, end: 20181101
  32. MEDIUM AND LONG CHAIN FAT EMULSION INJECTION [Concomitant]
     Active Substance: LIPOSYN (R) INTRAVENOUS FAT EMULSION
     Route: 042
     Dates: start: 20181123, end: 20181203

REACTIONS (2)
  - Bone marrow failure [Not Recovered/Not Resolved]
  - Tumour pain [Not Recovered/Not Resolved]

NARRATIVE: CASE EVENT DATE: 20181022
